FAERS Safety Report 22037748 (Version 1)
Quarter: 2023Q1

REPORT INFORMATION
  Report Type: Spontaneous
  Country: CN (occurrence: CN)
  Receive Date: 20230227
  Receipt Date: 20230227
  Transmission Date: 20230417
  Serious: Yes (Hospitalization, Other)
  Sender: FDA-Public Use
  Company Number: CN-SA-SAC20230224000221

PATIENT
  Age: 57 Year
  Sex: Female
  Weight: 52 kg

DRUGS (2)
  1. OXALIPLATIN [Suspect]
     Active Substance: OXALIPLATIN
     Indication: Gastric cancer
     Dosage: 150 MG; 1X
     Route: 041
     Dates: start: 20221222
  2. GIMERACIL\OTERACIL\TEGAFUR [Concomitant]
     Active Substance: GIMERACIL\OTERACIL\TEGAFUR
     Indication: Gastric cancer
     Dosage: 50 MG, BID
     Route: 048
     Dates: start: 20221222, end: 20230104

REACTIONS (5)
  - Marasmus [Recovering/Resolving]
  - Myelosuppression [Recovering/Resolving]
  - Neutrophil percentage decreased [Recovering/Resolving]
  - Red blood cell count decreased [Recovering/Resolving]
  - Haemoglobin decreased [Recovering/Resolving]

NARRATIVE: CASE EVENT DATE: 20230128
